FAERS Safety Report 4960916-4 (Version None)
Quarter: 2006Q1

REPORT INFORMATION
  Report Type: 
  Country: None (occurrence: None)
  Receive Date: 20060328
  Receipt Date: 20060313
  Transmission Date: 20060701
  Serious: Yes (Other)
  Sender: FDA-Public Use
  Company Number: 2006035656

PATIENT
  Age: 74 Year
  Sex: Female

DRUGS (8)
  1. PREDNISOLONE [Suspect]
     Indication: ILL-DEFINED DISORDER
  2. LIGNOCAINE (LIGNOCAINE) [Suspect]
     Indication: LOCAL ANAESTHESIA
     Dosage: INTRAOCULAR
     Route: 031
  3. BUPIVACAINE [Suspect]
     Indication: LOCAL ANAESTHESIA
     Dosage: (20 MG) INTRAOCULAR
     Route: 031
  4. HYALURONIDASE [Suspect]
     Indication: LOCAL ANAESTHESIA
     Dosage: INTRAOCULAR
     Route: 031
  5. PROXYMETACAINE (PROXYMETACAINE) [Suspect]
     Indication: LOCAL ANAESTHESIA
     Dosage: INTRAOCULAR
     Route: 031
  6. POVIDONE IODINE [Suspect]
     Indication: ENDOPHTHALMITIS
     Dosage: TOPICAL
     Route: 061
  7. CEFUROXIME [Concomitant]
  8. CHLORAMPHENICOL [Concomitant]

REACTIONS (7)
  - CONJUNCTIVAL OEDEMA [None]
  - EXOPHTHALMOS [None]
  - EYE INFLAMMATION [None]
  - EYE OPERATION COMPLICATION [None]
  - EYE PAIN [None]
  - INTRAOCULAR PRESSURE INCREASED [None]
  - PROCEDURAL PAIN [None]
